FAERS Safety Report 7654057-5 (Version None)
Quarter: 2011Q3

REPORT INFORMATION
  Report Type: 
  Country: None (occurrence: None)
  Receive Date: 20110803
  Receipt Date: 20110722
  Transmission Date: 20111222
  Serious: Yes (Hospitalization, Other)
  Sender: FDA-Public Use
  Company Number: PHHY2011US68186

PATIENT
  Sex: Female

DRUGS (1)
  1. GLEEVEC [Suspect]
     Indication: CHRONIC MYELOID LEUKAEMIA
     Dosage: 200 MG, QD
     Route: 048
     Dates: start: 20110527

REACTIONS (6)
  - HYPOGLYCAEMIA [None]
  - HYPOTHYROIDISM [None]
  - ULCER HAEMORRHAGE [None]
  - TRICHORRHEXIS [None]
  - INSOMNIA [None]
  - FATIGUE [None]
